FAERS Safety Report 7111412-X (Version None)
Quarter: 2010Q4

REPORT INFORMATION
  Report Type: 
  Country: None (occurrence: None)
  Receive Date: 20101118
  Receipt Date: 20101110
  Transmission Date: 20110411
  Serious: Yes (Other)
  Sender: FDA-Public Use
  Company Number: DE-JNJFOC-20101004380

PATIENT
  Sex: Male
  Weight: 69 kg

DRUGS (3)
  1. STELARA [Suspect]
     Indication: PSORIASIS
     Route: 058
  2. STELARA [Suspect]
     Route: 058
  3. ATORVASTATIN [Concomitant]
     Route: 065

REACTIONS (1)
  - WHITE BLOOD CELL COUNT DECREASED [None]
